FAERS Safety Report 8815296 (Version 1)
Quarter: 2012Q4

REPORT INFORMATION
  Report Type: 
  Country: DE (occurrence: DE)
  Receive Date: 20120928
  Receipt Date: 20120928
  Transmission Date: 20130627
  Serious: Yes (Other)
  Sender: FDA-Public Use
  Company Number: DE-UCBSA-067432

PATIENT

DRUGS (1)
  1. KEPPRA [Suspect]
     Dosage: DAILY DOSE: 1000 MG
     Route: 064
     Dates: end: 2012

REACTIONS (2)
  - Premature baby [Unknown]
  - Foetal exposure during pregnancy [Recovered/Resolved]
